FAERS Safety Report 12475431 (Version 4)
Quarter: 2017Q2

REPORT INFORMATION
  Report Type: Spontaneous
  Country: US (occurrence: US)
  Receive Date: 20160617
  Receipt Date: 20170613
  Transmission Date: 20170830
  Serious: Yes (Disabling, Other)
  Sender: FDA-Public Use
  Company Number: US-009507513-1606USA004961

PATIENT
  Sex: Female

DRUGS (1)
  1. NEXPLANON [Suspect]
     Active Substance: ETONOGESTREL
     Indication: CONTRACEPTION
     Dosage: 1 DF, EVERY THREE YEARS
     Route: 059
     Dates: start: 2015

REACTIONS (9)
  - Crying [Recovering/Resolving]
  - General anaesthesia [Recovering/Resolving]
  - Contusion [Unknown]
  - Complication of device removal [Recovering/Resolving]
  - Malaise [Recovering/Resolving]
  - Device difficult to use [Recovered/Resolved]
  - Device deployment issue [Recovering/Resolving]
  - Feeling abnormal [Recovering/Resolving]
  - Laceration [Unknown]

NARRATIVE: CASE EVENT DATE: 201501
